FAERS Safety Report 19559534 (Version 1)
Quarter: 2021Q3

REPORT INFORMATION
  Report Type: Spontaneous
  Country: US (occurrence: US)
  Receive Date: 20210715
  Receipt Date: 20210715
  Transmission Date: 20211014
  Serious: No
  Sender: FDA-Public Use
  Company Number: US-BAYER-2021-174409

PATIENT
  Age: 69 Year
  Sex: Female

DRUGS (1)
  1. ALEVE PM [Suspect]
     Active Substance: DIPHENHYDRAMINE HYDROCHLORIDE\NAPROXEN SODIUM
     Indication: PAIN
     Dosage: 1 DF, HS
     Route: 048

REACTIONS (4)
  - Incorrect dose administered [Unknown]
  - Nervousness [Recovered/Resolved]
  - Insomnia [Recovered/Resolved]
  - Incorrect product administration duration [Unknown]
